FAERS Safety Report 16840082 (Version 2)
Quarter: 2019Q4

REPORT INFORMATION
  Report Type: Report from Study
  Country: US (occurrence: US)
  Receive Date: 20190923
  Receipt Date: 20191106
  Transmission Date: 20200122
  Serious: No
  Sender: FDA-Public Use
  Company Number: US-ALNYLAM PHARMACEUTICALS, INC.-ALN-2019-000666

PATIENT
  Age: 86 Year
  Sex: Male

DRUGS (1)
  1. ONPATTRO [Suspect]
     Active Substance: PATISIRAN SODIUM
     Indication: HEREDITARY NEUROPATHIC AMYLOIDOSIS
     Dosage: UNK, Q3W
     Route: 042
     Dates: start: 20190701

REACTIONS (9)
  - Limb injury [Unknown]
  - Fall [Unknown]
  - Intentional dose omission [Unknown]
  - Movement disorder [Unknown]
  - Malaise [Unknown]
  - Liver function test abnormal [Unknown]
  - Joint stiffness [Unknown]
  - Musculoskeletal pain [Unknown]
  - Back pain [Unknown]

NARRATIVE: CASE EVENT DATE: 20190820
